FAERS Safety Report 24400414 (Version 1)
Quarter: 2024Q4

REPORT INFORMATION
  Report Type: Spontaneous
  Country: US (occurrence: US)
  Receive Date: 20241005
  Receipt Date: 20241005
  Transmission Date: 20250115
  Serious: No
  Sender: ROCHE
  Company Number: US-ROCHE-10000098835

PATIENT
  Age: 28 Year
  Sex: Male

DRUGS (2)
  1. HEMLIBRA [Suspect]
     Active Substance: EMICIZUMAB-KXWH
     Indication: Factor VIII deficiency
     Dosage: STRENGTH- 30MG/ML
     Route: 058
     Dates: start: 201906
  2. alphanate injection [Concomitant]

REACTIONS (1)
  - Tongue haemorrhage [Unknown]

NARRATIVE: CASE EVENT DATE: 20240920
